FAERS Safety Report 6247752-6 (Version None)
Quarter: 2009Q2

REPORT INFORMATION
  Report Type: 
  Country: None (occurrence: None)
  Receive Date: 20090626
  Receipt Date: 20090622
  Transmission Date: 20091009
  Serious: Yes (Hospitalization, Other)
  Sender: FDA-Public Use
  Company Number: FR-AMGEN-UK321242

PATIENT
  Sex: Male
  Weight: 80 kg

DRUGS (11)
  1. ROMIPLOSTIM [Suspect]
     Indication: IDIOPATHIC THROMBOCYTOPENIC PURPURA
     Route: 058
     Dates: start: 20081003, end: 20081112
  2. IMMUNOGLOBULINS [Concomitant]
     Dates: start: 20080601
  3. MABTHERA [Concomitant]
     Dates: start: 20080810
  4. NEORAL [Concomitant]
     Route: 065
  5. ALLOPURINOL [Concomitant]
     Route: 065
  6. CELIPROLOL [Concomitant]
     Route: 065
  7. PNEUMOCOCCAL VACCINE [Concomitant]
     Route: 065
     Dates: start: 20080901, end: 20080901
  8. INFLUENZA VACCINE [Concomitant]
     Route: 065
     Dates: start: 20080901, end: 20080901
  9. COLECALCIFEROL [Concomitant]
     Route: 065
  10. ORACILLINE [Concomitant]
     Route: 065
  11. DAPSONE [Concomitant]
     Route: 065
     Dates: start: 20080614

REACTIONS (1)
  - DRUG INEFFECTIVE [None]
